FAERS Safety Report 4759685-2 (Version None)
Quarter: 2005Q3

REPORT INFORMATION
  Report Type: 
  Country: None (occurrence: None)
  Receive Date: 20050826
  Receipt Date: 20050512
  Transmission Date: 20060218
  Serious: No
  Sender: FDA-Public Use
  Company Number: 214507

PATIENT
  Age: 40 Year
  Sex: Male

DRUGS (1)
  1. RAPTIVA (EFALIZUMAB) PWDR + SOLN, 125 MG [Suspect]
     Indication: PSORIASIS
     Dosage: 1 MG/KG

REACTIONS (1)
  - INFECTION [None]
